FAERS Safety Report 24390114 (Version 1)
Quarter: 2024Q4

REPORT INFORMATION
  Report Type: Report from Study
  Country: CN (occurrence: CN)
  Receive Date: 20241003
  Receipt Date: 20241003
  Transmission Date: 20250114
  Serious: Yes (Other)
  Sender: RANBAXY
  Company Number: CN-SUN PHARMACEUTICAL INDUSTRIES LTD-2024R1-470957

PATIENT
  Age: 9 Year
  Sex: Male

DRUGS (5)
  1. DEXAMETHASONE [Suspect]
     Active Substance: DEXAMETHASONE
     Indication: Acute lymphocytic leukaemia
     Dosage: 6 MILLIGRAM/SQ. METER, ON DAYS 8 TO 28, REDUCTION STARTING ON DAY 29, AND WITHDRAWAL WITHIN 9 DAYS:
     Route: 065
  2. PREDNISONE [Suspect]
     Active Substance: PREDNISONE
     Indication: Acute lymphocytic leukaemia
     Dosage: 15 MILLIGRAM/SQ. METER
     Route: 048
  3. VINCRISTINE [Suspect]
     Active Substance: VINCRISTINE
     Indication: Acute lymphocytic leukaemia
     Dosage: 1.5 MILLIGRAM/SQ. METER
     Route: 042
  4. DAUNORUBICIN [Suspect]
     Active Substance: DAUNORUBICIN
     Indication: Acute lymphocytic leukaemia
     Dosage: 30 MILLIGRAM/SQ. METER, ON DAYS 8 AND 15
     Route: 042
  5. ASPARAGINASE [Suspect]
     Active Substance: ASPARAGINASE
     Indication: Acute lymphocytic leukaemia
     Dosage: 5000 U/M2
     Route: 030

REACTIONS (1)
  - Posterior reversible encephalopathy syndrome [Unknown]
